FAERS Safety Report 24664187 (Version 1)
Quarter: 2024Q4

REPORT INFORMATION
  Report Type: Spontaneous
  Country: CA (occurrence: None)
  Receive Date: 20241126
  Receipt Date: 20241126
  Transmission Date: 20250115
  Serious: Yes (Other)
  Sender: ORION
  Company Number: CA-PFIZER INC-202400307600

PATIENT
  Age: 69 Year
  Sex: Male

DRUGS (7)
  1. METHOTREXATE [Suspect]
     Active Substance: METHOTREXATE
     Indication: Product used for unknown indication
  2. PROLIA [Concomitant]
     Active Substance: DENOSUMAB
     Dosage: ONGOING
  3. GABAPENTIN [Concomitant]
     Active Substance: GABAPENTIN
     Dosage: 100MG TID + 600MG AT BED TIME ?ONGOING
  4. OMEPRAZOLE [Concomitant]
     Active Substance: OMEPRAZOLE
     Dosage: ONGOING
  5. AMLODIPINE [Concomitant]
     Active Substance: AMLODIPINE BESYLATE
     Dosage: 5-20MG
  6. FOLIC ACID [Concomitant]
     Active Substance: FOLIC ACID
     Dosage: 5MG ONCE DAILY FOR 6 DAYS PER WEEK ?ONGOING
  7. OLMESARTAN [Concomitant]
     Active Substance: OLMESARTAN
     Dosage: ONGOING

REACTIONS (1)
  - Neoplasm malignant [Unknown]
